FAERS Safety Report 12351250 (Version 1)
Quarter: 2016Q2

REPORT INFORMATION
  Report Type: Spontaneous
  Country: US (occurrence: None)
  Receive Date: 20160509
  Receipt Date: 20160509
  Transmission Date: 20160815
  Serious: No
  Sender: FDA-Public Use
  Company Number: None

PATIENT
  Age: 54 Year
  Sex: Female

DRUGS (18)
  1. MULTI VIT [Concomitant]
  2. POTASSIUM [Concomitant]
     Active Substance: POTASSIUM
  3. BUT/ASA/CAFF [Concomitant]
     Active Substance: BUTALBITAL\CAFFEINE\SALICYLIC ACID
  4. BENADRYL [Concomitant]
     Active Substance: DIPHENHYDRAMINE HYDROCHLORIDE
  5. PRILOSEC [Concomitant]
     Active Substance: OMEPRAZOLE MAGNESIUM
  6. XELJANZ [Suspect]
     Active Substance: TOFACITINIB CITRATE
     Indication: ANKYLOSING SPONDYLITIS
     Route: 048
     Dates: start: 20150312
  7. ESTARDIOL [Concomitant]
  8. CARAFATE [Concomitant]
     Active Substance: SUCRALFATE
  9. CYMBALTA [Concomitant]
     Active Substance: DULOXETINE HYDROCHLORIDE
  10. BEANO [Concomitant]
     Active Substance: ASPERGILLUS NIGER .ALPHA.-GALACTOSIDASE
  11. FUROSEMIDE. [Concomitant]
     Active Substance: FUROSEMIDE
  12. TYLENOL [Concomitant]
     Active Substance: ACETAMINOPHEN
  13. VOLTAREN [Concomitant]
     Active Substance: DICLOFENAC SODIUM
  14. PREDNISONE. [Concomitant]
     Active Substance: PREDNISONE
  15. ATENOLOL. [Concomitant]
     Active Substance: ATENOLOL
  16. FLUTICASONE [Concomitant]
     Active Substance: FLUTICASONE\FLUTICASONE PROPIONATE
  17. VITAMIN B12 [Concomitant]
     Active Substance: CYANOCOBALAMIN
  18. PROBIOTIC [Concomitant]
     Active Substance: PROBIOTICS NOS

REACTIONS (1)
  - Night sweats [None]

NARRATIVE: CASE EVENT DATE: 2016
